FAERS Safety Report 18116057 (Version 1)
Quarter: 2020Q3

REPORT INFORMATION
  Report Type: Spontaneous
  Country: US (occurrence: US)
  Receive Date: 20200805
  Receipt Date: 20200805
  Transmission Date: 20201103
  Serious: Yes (Other)
  Sender: FDA-Public Use
  Company Number: US-REGENERON PHARMACEUTICALS, INC.-2020-52929

PATIENT

DRUGS (8)
  1. EYLEA [Suspect]
     Active Substance: AFLIBERCEPT
     Indication: DIABETIC RETINOPATHY
     Dosage: EVERY 6 WEEKS AND THEN 8 WEEKS, BOTH EYES
     Route: 031
     Dates: start: 2019
  2. VITAMIN D3 [Concomitant]
     Active Substance: CHOLECALCIFEROL
     Indication: PRODUCT USED FOR UNKNOWN INDICATION
  3. VITAMIN B12 [Concomitant]
     Active Substance: CYANOCOBALAMIN
     Indication: PRODUCT USED FOR UNKNOWN INDICATION
  4. EYLEA [Suspect]
     Active Substance: AFLIBERCEPT
     Dosage: EVERY 6 WEEKS AND THEN 8 WEEKS, BOTH EYES, LAST DOSE
     Route: 031
     Dates: start: 202007, end: 202007
  5. COREG [Concomitant]
     Active Substance: CARVEDILOL
     Indication: HYPERTENSION
  6. GLIPIZIDE. [Concomitant]
     Active Substance: GLIPIZIDE
     Indication: DIABETES MELLITUS
     Dosage: LOW DOSE
  7. BUMEX [Concomitant]
     Active Substance: BUMETANIDE
     Indication: DIURETIC THERAPY
     Dosage: ONE TABLET IN THE AM AND ONE TABLET IN PM
  8. HYDRALAZINE [Concomitant]
     Active Substance: HYDRALAZINE HYDROCHLORIDE
     Indication: HYPERTENSION

REACTIONS (6)
  - Sleep apnoea syndrome [Unknown]
  - Vision blurred [Recovering/Resolving]
  - Weight fluctuation [Unknown]
  - Chronic kidney disease [Unknown]
  - Cardiac failure congestive [Unknown]
  - Malaise [Recovered/Resolved]
